FAERS Safety Report 11427868 (Version 1)
Quarter: 2015Q3

REPORT INFORMATION
  Report Type: Report from Study
  Country: CA (occurrence: None)
  Receive Date: 20150826
  Receipt Date: 20150826
  Transmission Date: 20151125
  Serious: Yes (Other)
  Sender: FDA-Public Use
  Company Number: CA-2015VAL000531

PATIENT
  Age: 67 Year
  Sex: Female

DRUGS (2)
  1. SANDOSTATIN LAR DEPOT [Suspect]
     Active Substance: OCTREOTIDE ACETATE
     Indication: CARCINOID TUMOUR
     Dosage: 4 WEEKS
     Route: 030
     Dates: start: 20090512
  2. METOPROLOL TARTRATE (METOPROLOL TARTRATE) UNKNOWN [Suspect]
     Active Substance: METOPROLOL TARTRATE
     Indication: PRODUCT USED FOR UNKNOWN INDICATION
     Route: 048

REACTIONS (10)
  - Blood pressure increased [None]
  - Hot flush [None]
  - Hepatic neoplasm [None]
  - Diarrhoea [None]
  - Musculoskeletal pain [None]
  - Blood pressure systolic increased [None]
  - Hepatic cancer [None]
  - Neoplasm progression [None]
  - Nausea [None]
  - Drug dose omission [None]

NARRATIVE: CASE EVENT DATE: 2015
